FAERS Safety Report 8901744 (Version 1)
Quarter: 2012Q4

REPORT INFORMATION
  Report Type: Spontaneous
  Country: US (occurrence: None)
  Receive Date: 20121105
  Receipt Date: 20121105
  Transmission Date: 20130627
  Serious: Yes (Hospitalization, Other)
  Sender: FDA-Public Use
  Company Number: 2012P1061311

PATIENT
  Age: 8 Year
  Sex: Male
  Weight: 48 kg

DRUGS (5)
  1. ONDANSETRON [Suspect]
     Dosage: PRN
     Route: 048
  2. ONDANSETRON [Suspect]
     Route: 048
  3. MERCAPTOPURINE [Concomitant]
  4. METHOTREXATE [Concomitant]
  5. SULFAMETHOXAZOLE AND TRIMETHOPRIM [Concomitant]

REACTIONS (6)
  - Vomiting [None]
  - Anaemia macrocytic [None]
  - White blood cell count increased [None]
  - Hypotension [None]
  - No therapeutic response [None]
  - Incorrect dose administered [None]
